FAERS Safety Report 5486174-2 (Version None)
Quarter: 2007Q4

REPORT INFORMATION
  Report Type: 
  Country: None (occurrence: None)
  Receive Date: 20071012
  Receipt Date: 20071001
  Transmission Date: 20080405
  Serious: Yes (Hospitalization)
  Sender: FDA-Public Use
  Company Number: 2007-165159-NL

PATIENT
  Age: 24 Year
  Sex: Female
  Weight: 72.5 kg

DRUGS (4)
  1. NUVARING [Suspect]
     Indication: CONTRACEPTION
     Dosage: VAGINAL
     Route: 067
  2. PLACEBO VS RWJ-33369 [Suspect]
     Indication: ELECTROCARDIOGRAM QT INTERVAL
     Dosage: ORAL
     Route: 048
     Dates: start: 20070723, end: 20070729
  3. MOXIFLOXACIN HCL [Suspect]
     Indication: ELECTROCARDIOGRAM QT INTERVAL
     Dates: start: 20070730, end: 20070730
  4. PLACEBO VS. RWJ-333369 [Suspect]
     Indication: ELECTROCARDIOGRAM QT INTERVAL
     Dosage: ORAL
     Route: 048
     Dates: start: 20070813, end: 20070815

REACTIONS (6)
  - ABDOMINAL PAIN UPPER [None]
  - BACK PAIN [None]
  - DEEP VEIN THROMBOSIS [None]
  - DELUSION [None]
  - PARANOIA [None]
  - VENOUS THROMBOSIS LIMB [None]
